FAERS Safety Report 5549798-X (Version None)
Quarter: 2007Q4

REPORT INFORMATION
  Report Type: 
  Country: None (occurrence: None)
  Receive Date: 20071212
  Receipt Date: 20071204
  Transmission Date: 20080405
  Serious: Yes (Hospitalization, Other)
  Sender: FDA-Public Use
  Company Number: IT-JNJFOC-20071201902

PATIENT
  Age: 60 Year
  Sex: Male

DRUGS (3)
  1. REMICADE [Suspect]
     Route: 042
  2. REMICADE [Suspect]
     Indication: PSORIATIC ARTHROPATHY
     Route: 042
  3. NICOZID [Concomitant]
     Indication: ANTIBIOTIC PROPHYLAXIS

REACTIONS (4)
  - BALANCE DISORDER [None]
  - DIZZINESS [None]
  - HYPERTENSIVE CRISIS [None]
  - MALAISE [None]
